FAERS Safety Report 14335353 (Version 1)
Quarter: 2017Q4

REPORT INFORMATION
  Report Type: Report from Study
  Country: None (occurrence: CA)
  Receive Date: 20171229
  Receipt Date: 20171229
  Transmission Date: 20180321
  Serious: Yes (Hospitalization, Other)
  Sender: FDA-Public Use
  Company Number: CA-ABBVIE-17K-028-2207073-00

PATIENT
  Sex: Female

DRUGS (1)
  1. HUMIRA [Suspect]
     Active Substance: ADALIMUMAB
     Indication: CROHN^S DISEASE
     Route: 058

REACTIONS (9)
  - Injection site warmth [Not Recovered/Not Resolved]
  - Cryptitis [Unknown]
  - Granuloma [Unknown]
  - Injection site pruritus [Not Recovered/Not Resolved]
  - Small intestinal obstruction [Unknown]
  - Injection site swelling [Not Recovered/Not Resolved]
  - Enteritis [Unknown]
  - Injection site erythema [Not Recovered/Not Resolved]
  - Injection site papule [Not Recovered/Not Resolved]
